FAERS Safety Report 4682115-6 (Version None)
Quarter: 2005Q2

REPORT INFORMATION
  Report Type: 
  Country: None (occurrence: None)
  Receive Date: 20050531
  Receipt Date: 20050317
  Transmission Date: 20051028
  Serious: No
  Sender: FDA-Public Use
  Company Number: FABR-10638

PATIENT
  Age: 27 Year
  Sex: Male
  Weight: 72.73 kg

DRUGS (5)
  1. FABRAZYME [Suspect]
     Indication: FABRY'S DISEASE
  2. TEGRETOL [Concomitant]
  3. MINOXODYL [Concomitant]
  4. LOPRESSOR [Concomitant]
  5. NORVASC [Concomitant]

REACTIONS (5)
  - ABDOMINAL PAIN UPPER [None]
  - BLOOD PRESSURE INCREASED [None]
  - DYSPNOEA [None]
  - NAUSEA [None]
  - VOMITING [None]
